FAERS Safety Report 21077667 (Version 4)
Quarter: 2023Q1

REPORT INFORMATION
  Report Type: Spontaneous
  Country: JP (occurrence: JP)
  Receive Date: 20220713
  Receipt Date: 20230208
  Transmission Date: 20230417
  Serious: Yes (Hospitalization)
  Sender: FDA-Public Use
  Company Number: JP-Eisai-202203674_LEN-EC_P_1

PATIENT
  Sex: Female

DRUGS (5)
  1. LENVIMA [Interacting]
     Active Substance: LENVATINIB
     Indication: Endometrial cancer
     Route: 048
     Dates: start: 20220601, end: 202206
  2. LENVIMA [Interacting]
     Active Substance: LENVATINIB
     Route: 048
     Dates: start: 20220629, end: 20220803
  3. LENVIMA [Interacting]
     Active Substance: LENVATINIB
     Route: 048
     Dates: start: 2022, end: 202212
  4. KEYTRUDA [Interacting]
     Active Substance: PEMBROLIZUMAB
     Indication: Endometrial cancer
     Route: 041
     Dates: start: 20220601, end: 20220803
  5. KEYTRUDA [Interacting]
     Active Substance: PEMBROLIZUMAB
     Dosage: DOSE AND FREQUENCY UNKNOWN
     Route: 041
     Dates: start: 2022, end: 202212

REACTIONS (6)
  - Pyrexia [Not Recovered/Not Resolved]
  - Amylase increased [Recovered/Resolved]
  - Hypertension [Unknown]
  - Platelet count decreased [Unknown]
  - Cholecystitis acute [Unknown]
  - Drug interaction [Not Recovered/Not Resolved]

NARRATIVE: CASE EVENT DATE: 20220601
